FAERS Safety Report 5470535-1 (Version None)
Quarter: 2007Q3

REPORT INFORMATION
  Report Type: 
  Country: None (occurrence: None)
  Receive Date: 20070927
  Receipt Date: 20070927
  Transmission Date: 20080115
  Serious: Yes (Death, Life-Threatening, Hospitalization, Disabling, Congenital Anomaly, Other)
  Sender: FDA-Public Use
  Company Number: None

PATIENT
  Sex: Male
  Weight: 3.6288 kg

DRUGS (1)
  1. ZOLOFT [Suspect]
     Indication: ADRENAL DISORDER
     Dosage: 100 MG / DAY ONCE A DAY PO
     Route: 048
     Dates: start: 19990101, end: 20060605

REACTIONS (11)
  - AORTIC STENOSIS [None]
  - ATRIAL SEPTAL DEFECT [None]
  - BICUSPID AORTIC VALVE [None]
  - CLEFT PALATE [None]
  - CONGENITAL ARTERIAL MALFORMATION [None]
  - CONGENITAL PULMONARY HYPERTENSION [None]
  - DIGEORGE'S SYNDROME [None]
  - DRUG EXPOSURE DURING PREGNANCY [None]
  - GASTROINTESTINAL DISORDER [None]
  - PERSISTENT FOETAL CIRCULATION [None]
  - VENTRICULAR SEPTAL DEFECT [None]
